FAERS Safety Report 4447757-1 (Version None)
Quarter: 2004Q3

REPORT INFORMATION
  Report Type: 
  Country: None (occurrence: None)
  Receive Date: 20040719
  Receipt Date: 20031215
  Transmission Date: 20050211
  Serious: No
  Sender: FDA-Public Use
  Company Number: 233672

PATIENT
  Age: 35 Year
  Sex: Female
  Weight: 68 kg

DRUGS (1)
  1. NOVOLIN R [Suspect]
     Indication: DIABETES MELLITUS INSULIN-DEPENDENT
     Dosage: 5 IU, TID, SUBCUTANEOUS
     Route: 058
     Dates: start: 19830101

REACTIONS (2)
  - HYPOGLYCAEMIC COMA [None]
  - HYPOGLYCAEMIC SEIZURE [None]
